FAERS Safety Report 8295562-0 (Version None)
Quarter: 2012Q2

REPORT INFORMATION
  Report Type: 
  Country: None (occurrence: None)
  Receive Date: 20120413
  Receipt Date: 20120402
  Transmission Date: 20120825
  Serious: Yes (Other)
  Sender: FDA-Public Use
  Company Number: 2012ST000348

PATIENT
  Age: 31 Year
  Sex: Female

DRUGS (8)
  1. ADRIAMYCIN PFS [Suspect]
     Indication: HODGKIN'S DISEASE
  2. DACARBAZINE [Suspect]
     Indication: HODGKIN'S DISEASE
  3. ONCOVIN [Suspect]
     Indication: HODGKIN'S DISEASE
  4. VINBLASTINE SULFATE [Suspect]
     Indication: HODGKIN'S DISEASE
  5. BLOMYCIN (BLEOMYCIN) [Suspect]
     Indication: HODGKIN'S DISEASE
  6. MECHLORETAMINE (NO PREF. NAME) [Suspect]
     Indication: HODGKIN'S DISEASE
  7. MATULANE [Suspect]
     Indication: HODGKIN'S DISEASE
     Dosage: PO
     Route: 048
  8. PREDNISONE TAB [Suspect]
     Indication: HODGKIN'S DISEASE

REACTIONS (5)
  - GASTROOESOPHAGEAL REFLUX DISEASE [None]
  - BARRETT'S OESOPHAGUS [None]
  - MUCOSAL INFLAMMATION [None]
  - VOMITING [None]
  - OESOPHAGEAL STENOSIS [None]
